FAERS Safety Report 13911172 (Version 2)
Quarter: 2017Q3

REPORT INFORMATION
  Report Type: Spontaneous
  Country: SI (occurrence: SI)
  Receive Date: 20170828
  Receipt Date: 20170904
  Transmission Date: 20171127
  Serious: Yes (Other)
  Sender: FDA-Public Use
  Company Number: SI-PFIZER INC-2011000270

PATIENT
  Age: 77 Year
  Sex: Male

DRUGS (4)
  1. CISPLATIN. [Suspect]
     Active Substance: CISPLATIN
     Indication: BLADDER CANCER
     Dosage: 75 MG/M2, EVERY 3 WEEKS (ON DAY 1), FOUR CYCLES
     Dates: start: 200905, end: 200908
  2. GEMCITABINE HYDROCHLORIDE. [Suspect]
     Active Substance: GEMCITABINE HYDROCHLORIDE
     Dosage: 4000 MG/M2, CYCLIC (CUMULATIVE DOSE OF GEMCITABINE)
     Dates: start: 200905, end: 200908
  3. GEMCITABINE HYDROCHLORIDE. [Suspect]
     Active Substance: GEMCITABINE HYDROCHLORIDE
     Indication: BLADDER CANCER
     Dosage: 1000 MG/M2, EVERY 3 WEEKS (ON DAY 1), FOUR CYCLES
     Dates: start: 200905, end: 200908
  4. CISPLATIN. [Suspect]
     Active Substance: CISPLATIN
     Dosage: 300 MG/M2, CYCLIC (CUMULATIVE DOSE OF CISPLATIN 300 MG/M2)
     Dates: start: 200905, end: 200908

REACTIONS (2)
  - Peripheral arterial occlusive disease [Recovered/Resolved]
  - Necrosis ischaemic [Recovered/Resolved]

NARRATIVE: CASE EVENT DATE: 20090808
